FAERS Safety Report 8658508 (Version 2)
Quarter: 2013Q2

REPORT INFORMATION
  Report Type: Spontaneous
  Country: US (occurrence: None)
  Receive Date: 20120402
  Receipt Date: 20130118
  Transmission Date: 20140414
  Serious: Yes (Life-Threatening, Hospitalization, Other)
  Sender: FDA-Public Use
  Company Number: A-US2011-53533

PATIENT
  Age: 73 Year
  Sex: Female

DRUGS (11)
  1. TRACLEER [Suspect]
     Indication: PULMONARY ARTERIAL HYPERTENSION
     Dosage: 125 MG, BID, ORAL
     Route: 048
     Dates: start: 2010
  2. REVATIO [Concomitant]
  3. FENTANYL [Concomitant]
  4. VITAMIN D3 (COLECALCIFEROL) [Concomitant]
  5. CALCIUM CARBONATE [Concomitant]
  6. IMURAN [Concomitant]
  7. LASIX [Concomitant]
  8. LISINOPRIL [Concomitant]
  9. PREDNISONE [Concomitant]
  10. SYNTHROID [Concomitant]
  11. PLAQUENIL [Concomitant]

REACTIONS (6)
  - CARDIAC FAILURE CONGESTIVE [None]
  - DYSPNOEA [None]
  - OEDEMA PERIPHERAL [None]
  - FLUID OVERLOAD [None]
  - OXYGEN CONSUMPTION INCREASED [None]
  - Fluid retention [None]
